FAERS Safety Report 7315852-5 (Version None)
Quarter: 2011Q1

REPORT INFORMATION
  Report Type: 
  Country: None (occurrence: None)
  Receive Date: 20110217
  Receipt Date: 20110217
  Transmission Date: 20110831
  Serious: Yes (Hospitalization)
  Sender: FDA-Public Use
  Company Number: None

PATIENT
  Sex: Female
  Weight: 67.5 kg

DRUGS (2)
  1. ETOPOSIDE [Suspect]
     Dosage: 522 MG
  2. CISPLATIN [Suspect]
     Dosage: 139 MG

REACTIONS (1)
  - NEUTROPHIL COUNT DECREASED [None]
